FAERS Safety Report 11786678 (Version 3)
Quarter: 2016Q1

REPORT INFORMATION
  Report Type: Spontaneous
  Country: GB (occurrence: GB)
  Receive Date: 20151130
  Receipt Date: 20160113
  Transmission Date: 20160525
  Serious: Yes (Death, Hospitalization, Other)
  Sender: FDA-Public Use
  Company Number: GB-BAYER-2015-470907

PATIENT
  Sex: Male

DRUGS (1)
  1. XOFIGO [Suspect]
     Active Substance: RADIUM RA-223 DICHLORIDE
     Dosage: ONE DOSE ADMINISTERED, FIRST CYCLE
     Route: 042
     Dates: start: 20150424, end: 20150424

REACTIONS (4)
  - Haemoglobin decreased [None]
  - Femur fracture [Fatal]
  - Fall [None]
  - Cervical vertebral fracture [Fatal]

NARRATIVE: CASE EVENT DATE: 20150525
